FAERS Safety Report 9090592 (Version 1)
Quarter: 2013Q1

REPORT INFORMATION
  Report Type: Spontaneous
  Country: US (occurrence: US)
  Receive Date: 20130131
  Receipt Date: 20130131
  Transmission Date: 20140127
  Serious: No
  Sender: FDA-Public Use
  Company Number: US-BAYER-2013-012535

PATIENT
  Age: 43 Year
  Sex: Female
  Weight: 28.57 kg

DRUGS (8)
  1. BETASERON [Suspect]
     Dosage: 0.25 MG, QOD
     Route: 058
  2. IBUPROFEN [Concomitant]
     Dosage: 200 MG, UNK
  3. BACLOFEN [Concomitant]
     Dosage: 10 MG, UNK
  4. ALPRAZOLAM [Concomitant]
     Dosage: 0.25 MG, UNK
  5. VITAMIN D [Concomitant]
     Dosage: 1000 U, UNK
  6. VITAMIN B [Concomitant]
     Dosage: 50 DF, UNK
  7. B-COMPLEX [Concomitant]
  8. IRON [Concomitant]

REACTIONS (3)
  - Injection site swelling [Recovered/Resolved]
  - Injection site bruising [Recovered/Resolved]
  - Injection site mass [Recovered/Resolved]
